FAERS Safety Report 6087312-3 (Version None)
Quarter: 2009Q1

REPORT INFORMATION
  Report Type: 
  Country: None (occurrence: None)
  Receive Date: 20090223
  Receipt Date: 20090213
  Transmission Date: 20090719
  Serious: Yes (Death)
  Sender: FDA-Public Use
  Company Number: A0769592A

PATIENT
  Age: 63 Year
  Sex: Male

DRUGS (2)
  1. AVANDIA [Suspect]
     Dosage: 8MG PER DAY
     Route: 065
     Dates: start: 20000101, end: 20020901
  2. GLUCOPHAGE [Concomitant]
     Dates: start: 19990101, end: 20010101

REACTIONS (3)
  - CARDIAC ARREST [None]
  - MYOCARDIAL ISCHAEMIA [None]
  - PAIN [None]
